FAERS Safety Report 21909775 (Version 1)
Quarter: 2023Q1

REPORT INFORMATION
  Report Type: Spontaneous
  Country: CA (occurrence: CA)
  Receive Date: 20230125
  Receipt Date: 20230125
  Transmission Date: 20230418
  Serious: Yes (Other)
  Sender: FDA-Public Use
  Company Number: None

PATIENT

DRUGS (6)
  1. OLMESARTAN MEDOXOMIL [Suspect]
     Active Substance: OLMESARTAN MEDOXOMIL
     Indication: Blood pressure measurement
     Dosage: UNK
     Route: 048
  2. BELIMUMAB [Suspect]
     Active Substance: BELIMUMAB
     Indication: Systemic lupus erythematosus
     Dosage: UNK
     Route: 065
  3. CLARITHROMYCIN [Suspect]
     Active Substance: CLARITHROMYCIN
     Indication: Nephrolithiasis
     Dosage: UNK
     Route: 065
  4. CYMBALTA [Suspect]
     Active Substance: DULOXETINE HYDROCHLORIDE
     Indication: Pain
     Dosage: UNK, 60.0 MG
     Route: 065
  5. CYMBALTA [Suspect]
     Active Substance: DULOXETINE HYDROCHLORIDE
     Indication: Product used for unknown indication
     Dosage: UNK, 30.0 MG
     Route: 065
  6. CIPROFLOXACIN HYDROCHLORIDE [Suspect]
     Active Substance: CIPROFLOXACIN HYDROCHLORIDE
     Indication: Nephrolithiasis
     Dosage: UNK
     Route: 065

REACTIONS (18)
  - Arthritis [Recovered/Resolved]
  - Blood cholesterol abnormal [Recovered/Resolved]
  - Blood pressure decreased [Recovered/Resolved]
  - Blood pressure increased [Recovered/Resolved]
  - Hand deformity [Recovered/Resolved]
  - Hypersomnia [Recovered/Resolved]
  - Joint dislocation [Recovered/Resolved]
  - Kidney infection [Recovered/Resolved]
  - Loss of personal independence in daily activities [Recovered/Resolved]
  - Nephrolithiasis [Recovered/Resolved]
  - Personality change due to a general medical condition [Recovered/Resolved]
  - Renal disorder [Recovered/Resolved]
  - Skin induration [Recovered/Resolved]
  - Urine abnormality [Recovered/Resolved]
  - Varicose vein [Recovered/Resolved]
  - Vein disorder [Recovered/Resolved]
  - Drug ineffective [Unknown]
  - Product dose omission issue [Unknown]
